FAERS Safety Report 4500892-1 (Version None)
Quarter: 2004Q4

REPORT INFORMATION
  Report Type: 
  Country: None (occurrence: None)
  Receive Date: 20041109
  Receipt Date: 20041105
  Transmission Date: 20050328
  Serious: Yes (Other)
  Sender: FDA-Public Use
  Company Number: S04-USA-02091-01

PATIENT
  Age: 89 Year
  Sex: Male

DRUGS (10)
  1. NAMENDA [Suspect]
     Indication: DEMENTIA ALZHEIMER'S TYPE
     Dates: start: 20040101, end: 20040101
  2. NAMENDA [Concomitant]
     Indication: DEMENTIA ALZHEIMER'S TYPE
     Dates: start: 20040101, end: 20040101
  3. NAMENDA [Suspect]
     Indication: DEMENTIA ALZHEIMER'S TYPE
     Dosage: 5 MG BID PO
     Route: 048
     Dates: start: 20040407, end: 20050521
  4. ASPIRIN [Concomitant]
  5. ZESTRIL [Concomitant]
  6. GLYBURIDE [Concomitant]
  7. PRAVASTATIN [Concomitant]
  8. ALPHAGAN [Concomitant]
  9. XALATAN [Concomitant]
  10. TIMOL (MALEATE) [Concomitant]

REACTIONS (3)
  - DRUG INTERACTION [None]
  - ELECTROCARDIOGRAM QT CORRECTED INTERVAL PROLONGED [None]
  - ELECTROCARDIOGRAM QT PROLONGED [None]
